FAERS Safety Report 25457932 (Version 1)
Quarter: 2025Q2

REPORT INFORMATION
  Report Type: Spontaneous
  Country: CA (occurrence: CA)
  Receive Date: 20250620
  Receipt Date: 20250620
  Transmission Date: 20250717
  Serious: Yes (Other)
  Sender: VELOXIS PHARMACEUTICALS
  Company Number: CA-VELOXIS PHARMACEUTICALS, INC.-2025-VEL-00149

PATIENT
  Age: 28 Year
  Sex: Female

DRUGS (3)
  1. TACROLIMUS [Suspect]
     Active Substance: TACROLIMUS
     Indication: Lupus nephritis
  2. TACROLIMUS [Suspect]
     Active Substance: TACROLIMUS
  3. TACROLIMUS [Suspect]
     Active Substance: TACROLIMUS

REACTIONS (4)
  - Cerebrovascular accident [Recovered/Resolved]
  - Nasopharyngitis [Unknown]
  - Off label use [Unknown]
  - Intentional dose omission [Unknown]
